FAERS Safety Report 19370428 (Version 2)
Quarter: 2021Q2

REPORT INFORMATION
  Report Type: Spontaneous
  Country: JP (occurrence: JP)
  Receive Date: 20210604
  Receipt Date: 20210616
  Transmission Date: 20210717
  Serious: Yes (Hospitalization, Other)
  Sender: FDA-Public Use
  Company Number: JP-TAKEDA-2021TJP030390

PATIENT
  Age: 45 Year
  Sex: Female

DRUGS (6)
  1. TRYPTANOL [Suspect]
     Active Substance: AMITRIPTYLINE
     Indication: PRODUCT USED FOR UNKNOWN INDICATION
     Dosage: UNK
     Route: 065
  2. TRINTELLIX [Suspect]
     Active Substance: VORTIOXETINE HYDROBROMIDE
     Indication: DEPRESSION
     Dosage: 10 MILLIGRAM
     Route: 048
  3. REFLEX [Concomitant]
     Active Substance: MIRTAZAPINE
     Dosage: 30 DOSAGE FORM
     Route: 065
     Dates: start: 20210527, end: 20210527
  4. TRYPTANOL [Suspect]
     Active Substance: AMITRIPTYLINE
     Dosage: 30 DOSAGE FORM
     Route: 065
     Dates: start: 20210527, end: 20210527
  5. TRINTELLIX [Suspect]
     Active Substance: VORTIOXETINE HYDROBROMIDE
     Dosage: 300 MILLIGRAM
     Route: 048
     Dates: start: 20210527, end: 20210527
  6. REFLEX [Concomitant]
     Active Substance: MIRTAZAPINE
     Dosage: UNK
     Route: 065

REACTIONS (3)
  - Electrocardiogram QT prolonged [Recovering/Resolving]
  - Suicidal ideation [Unknown]
  - Intentional overdose [Unknown]

NARRATIVE: CASE EVENT DATE: 20210527
